FAERS Safety Report 7243256-2 (Version None)
Quarter: 2011Q1

REPORT INFORMATION
  Report Type: 
  Country: None (occurrence: None)
  Receive Date: 20110125
  Receipt Date: 20110120
  Transmission Date: 20110831
  Serious: Yes (Hospitalization, Other)
  Sender: FDA-Public Use
  Company Number: BR-ROCHE-754119

PATIENT
  Sex: Male
  Weight: 70 kg

DRUGS (2)
  1. RIVOTRIL [Suspect]
     Route: 048
     Dates: start: 20100101
  2. DEPAKENE [Concomitant]
     Dates: start: 20100101

REACTIONS (6)
  - SCHIZOPHRENIA [None]
  - AGGRESSION [None]
  - DRUG INEFFECTIVE [None]
  - OVERDOSE [None]
  - COMA [None]
  - PSEUDOLOGIA [None]
